FAERS Safety Report 16782770 (Version 1)
Quarter: 2019Q3

REPORT INFORMATION
  Report Type: Report from Study
  Country: ES (occurrence: ES)
  Receive Date: 20190906
  Receipt Date: 20190906
  Transmission Date: 20191005
  Serious: Yes (Other)
  Sender: FDA-Public Use
  Company Number: ES-MYLANLABS-2019M1083147

PATIENT
  Age: 54 Year
  Sex: Male

DRUGS (22)
  1. DULOXETINE. [Suspect]
     Active Substance: DULOXETINE
     Indication: CANCER PAIN
     Dosage: 60 MG / 24 H
     Route: 065
  2. PAROXETINE. [Concomitant]
     Active Substance: PAROXETINE
     Indication: PRODUCT USED FOR UNKNOWN INDICATION
     Dosage: 20 MG/NIGHT
     Route: 065
  3. FENTANYL. [Suspect]
     Active Substance: FENTANYL
     Dosage: 100 UNK, PRN
     Route: 045
  4. CISPLATINE [Concomitant]
     Active Substance: CISPLATIN
     Indication: LUNG ADENOCARCINOMA STAGE IV
     Dosage: UNKNOWN
     Route: 016
  5. MEGESTROL ACETATE. [Concomitant]
     Active Substance: MEGESTROL ACETATE
     Indication: PRODUCT USED FOR UNKNOWN INDICATION
     Dosage: 160 MG, Q8H
     Route: 065
  6. PEMETREXED. [Concomitant]
     Active Substance: PEMETREXED
     Indication: LUNG ADENOCARCINOMA STAGE IV
  7. ZOLEDRONIC ACID [Suspect]
     Active Substance: ZOLEDRONIC ACID
     Indication: CANCER PAIN
     Dosage: UNK, 1X/4 WEEKS
     Route: 065
  8. FENTANYL. [Suspect]
     Active Substance: FENTANYL
     Indication: BREAKTHROUGH PAIN
     Dosage: UNKNOWN (BARELY NECESSARY)
     Route: 045
  9. PEMETREXED. [Concomitant]
     Active Substance: PEMETREXED
     Indication: METASTASES TO BONE
     Dosage: UNK
  10. FENTANYL. [Suspect]
     Active Substance: FENTANYL
     Dosage: 100 UG, EVERY 3 DAYS
  11. KETAMINE [Suspect]
     Active Substance: KETAMINE
     Indication: CANCER PAIN
     Dosage: UNKNOWN
     Route: 065
  12. OMEPRAZOLE. [Suspect]
     Active Substance: OMEPRAZOLE
     Indication: CANCER PAIN
     Dosage: 20 / 24H
     Route: 065
  13. FENTANYL. [Suspect]
     Active Substance: FENTANYL
     Dosage: 2-3 DOSES EVERY 24 HOURS
     Route: 045
  14. FENTANYL. [Suspect]
     Active Substance: FENTANYL
     Dosage: 800 MICROGRAM
     Route: 045
  15. FENTANYL. [Suspect]
     Active Substance: FENTANYL
     Dosage: 400 UG (REQUIRING 2 DOSES DAILY )
     Route: 045
  16. FENTANYL. [Suspect]
     Active Substance: FENTANYL
     Indication: CANCER PAIN
     Dosage: 75 UNK, EVERY 3 DAYS
     Route: 065
  17. PREGABALIN. [Suspect]
     Active Substance: PREGABALIN
     Indication: CANCER PAIN
     Dosage: 150 UNK, Q12H
     Route: 065
  18. OXYCODONE [Suspect]
     Active Substance: OXYCODONE
     Indication: CANCER PAIN
     Dosage: 10 MG, Q8H
     Route: 065
  19. NAPROXEN. [Suspect]
     Active Substance: NAPROXEN
     Indication: CANCER PAIN
     Dosage: 500 UNK, Q12H
     Route: 065
  20. BACLOFEN. [Suspect]
     Active Substance: BACLOFEN
     Indication: CANCER PAIN
     Dosage: 10 MG, Q12H
     Route: 065
  21. CISPLATINE [Concomitant]
     Active Substance: CISPLATIN
     Indication: METASTASES TO BONE
  22. DEXAMETHASONE. [Concomitant]
     Active Substance: DEXAMETHASONE
     Indication: PRODUCT USED FOR UNKNOWN INDICATION
     Dosage: UNKNOWN
     Route: 065

REACTIONS (16)
  - Dysphagia [Unknown]
  - Cognitive disorder [Unknown]
  - Somnolence [Unknown]
  - Sleep apnoea syndrome [Unknown]
  - Decreased appetite [Recovering/Resolving]
  - Anxiety [Unknown]
  - Insomnia [Unknown]
  - Constipation [Unknown]
  - Delirium [Unknown]
  - Depression [Recovering/Resolving]
  - Urinary retention [Unknown]
  - Vomiting [Unknown]
  - Pulmonary embolism [Unknown]
  - Adverse event [Unknown]
  - Dyspnoea [Unknown]
  - Fatigue [Unknown]
